FAERS Safety Report 18621338 (Version 1)
Quarter: 2020Q4

REPORT INFORMATION
  Report Type: Spontaneous
  Country: US (occurrence: US)
  Receive Date: 20201215
  Receipt Date: 20201215
  Transmission Date: 20210114
  Serious: No
  Sender: FDA-Public Use
  Company Number: US-ASTRAZENECA-2020SF65394

PATIENT
  Sex: Female

DRUGS (3)
  1. PREDNISONE. [Concomitant]
     Active Substance: PREDNISONE
  2. SYMBICORT [Suspect]
     Active Substance: BUDESONIDE\FORMOTEROL FUMARATE DIHYDRATE
     Indication: ASTHMA
     Dosage: 160/4.5 UG, TWO INHALATIONS TWO TIMES A DAY
     Route: 055
     Dates: start: 2016
  3. CORTISOL [Concomitant]
     Active Substance: HYDROCORTISONE

REACTIONS (3)
  - Oropharyngeal pain [Unknown]
  - Oral candidiasis [Unknown]
  - Speech disorder [Unknown]
